FAERS Safety Report 6745538-7 (Version None)
Quarter: 2010Q2

REPORT INFORMATION
  Report Type: 
  Country: None (occurrence: None)
  Receive Date: 20100526
  Receipt Date: 20100526
  Transmission Date: 20101027
  Serious: Yes (Other)
  Sender: FDA-Public Use
  Company Number: None

PATIENT
  Sex: Female
  Weight: 7 kg

DRUGS (1)
  1. OMEGAVEN 1G / KG (70 ML) DAILY IV [Suspect]
     Dosage: 1G/KG (70 ML) DAILY IV
     Route: 042
     Dates: start: 20100304

REACTIONS (1)
  - CELLULITIS [None]
